FAERS Safety Report 16277843 (Version 1)
Quarter: 2019Q2

REPORT INFORMATION
  Report Type: Spontaneous
  Country: FR (occurrence: FR)
  Receive Date: 20190506
  Receipt Date: 20190506
  Transmission Date: 20190711
  Serious: Yes (Hospitalization)
  Sender: FDA-Public Use
  Company Number: FR-MYLANLABS-2019M1042434

PATIENT
  Age: 11 Year
  Sex: Male
  Weight: 32.5 kg

DRUGS (7)
  1. ZOPHREN                            /00955302/ [Suspect]
     Active Substance: ONDANSETRON
     Indication: VOMITING
     Dosage: 1 DOSAGE FORM, BID
     Route: 048
     Dates: start: 201810
  2. BACTRIM [Suspect]
     Active Substance: SULFAMETHOXAZOLE\TRIMETHOPRIM
     Indication: ANTIBIOTIC PROPHYLAXIS
     Dosage: 2400 MILLIGRAM, QW
     Route: 048
     Dates: start: 201810
  3. TOPALGIC                           /00599202/ [Suspect]
     Active Substance: TRAMADOL HYDROCHLORIDE
     Indication: PAIN
     Dosage: UNK
     Route: 048
  4. FLUOXETINE [Suspect]
     Active Substance: FLUOXETINE HYDROCHLORIDE
     Indication: DEPRESSION
     Dosage: 20 MILLIGRAM, QD
     Route: 048
  5. CISPLATIN. [Suspect]
     Active Substance: CISPLATIN
     Indication: MEDULLOBLASTOMA
     Dosage: 70 MILLIGRAM/SQ. METER
     Route: 042
     Dates: start: 20181023, end: 20181023
  6. VINCRISTINE SULFATE. [Suspect]
     Active Substance: VINCRISTINE SULFATE
     Indication: MEDULLOBLASTOMA
     Dosage: 1.5 MILLIGRAM/SQ. METER
     Route: 042
     Dates: start: 20181023, end: 20181106
  7. LOMUSTINE. [Suspect]
     Active Substance: LOMUSTINE
     Indication: MEDULLOBLASTOMA
     Dosage: 75 MILLIGRAM/SQ. METER
     Route: 042
     Dates: start: 20181023, end: 20181023

REACTIONS (1)
  - Posterior reversible encephalopathy syndrome [Recovering/Resolving]

NARRATIVE: CASE EVENT DATE: 20181109
